FAERS Safety Report 7651271-X (Version None)
Quarter: 2011Q3

REPORT INFORMATION
  Report Type: 
  Country: None (occurrence: None)
  Receive Date: 20110802
  Receipt Date: 20110729
  Transmission Date: 20111222
  Serious: Yes (Congenital Anomaly)
  Sender: FDA-Public Use
  Company Number: US-ABBOTT-11P-163-0842413-00

PATIENT

DRUGS (2)
  1. KALETRA [Suspect]
     Indication: MATERNAL EXPOSURE DURING PREGNANCY
     Route: 064
  2. TRUVADA [Suspect]
     Indication: MATERNAL EXPOSURE DURING PREGNANCY
     Route: 064

REACTIONS (5)
  - FOETAL MALFORMATION [None]
  - MATERNAL EXPOSURE DURING PREGNANCY [None]
  - MACROCEPHALY [None]
  - DYSMORPHISM [None]
  - HOLOPROSENCEPHALY [None]
